FAERS Safety Report 8030880-2 (Version None)
Quarter: 2011Q4

REPORT INFORMATION
  Report Type: 
  Country: None (occurrence: None)
  Receive Date: 20111202
  Receipt Date: 20100915
  Transmission Date: 20120403
  Serious: Yes (Hospitalization)
  Sender: FDA-Public Use
  Company Number: 2010SP049206

PATIENT
  Age: 46 Year
  Sex: Female
  Weight: 58.7771 kg

DRUGS (5)
  1. KLONOPIN [Suspect]
     Indication: ANXIETY
     Dosage: 1 MG;PRN
     Dates: start: 20060101
  2. NUVARING [Suspect]
     Indication: MENSTRUATION IRREGULAR
     Dates: start: 20080922, end: 20081112
  3. NUVARING [Suspect]
     Indication: MENORRHAGIA
     Dates: start: 20080922, end: 20081112
  4. NUVARING [Suspect]
     Indication: ANXIETY
     Dates: start: 20080922, end: 20081112
  5. NUVARING [Suspect]
     Indication: DYSMENORRHOEA
     Dates: start: 20080922, end: 20081112

REACTIONS (6)
  - MIGRAINE [None]
  - FLANK PAIN [None]
  - NASOPHARYNGITIS [None]
  - DIARRHOEA [None]
  - PULMONARY EMBOLISM [None]
  - FATIGUE [None]
